FAERS Safety Report 7362149-3 (Version None)
Quarter: 2011Q1

REPORT INFORMATION
  Report Type: 
  Country: None (occurrence: None)
  Receive Date: 20110318
  Receipt Date: 20110314
  Transmission Date: 20110831
  Serious: Yes (Hospitalization, Other)
  Sender: FDA-Public Use
  Company Number: GB-ABBOTT-11P-167-0711571-00

PATIENT
  Age: 50 Year
  Sex: Male

DRUGS (24)
  1. KLARICID [Suspect]
     Indication: PRODUCT USED FOR UNKNOWN INDICATION
  2. CLENIL MODULITE CFC-FREE [Concomitant]
     Indication: PRODUCT USED FOR UNKNOWN INDICATION
     Dosage: 2/DAY-100 MCG/ACTUATION. DOUBLE UP WITH INCREASING SYMPTOMS (COUGH OR COLD).
     Dates: start: 19960101
  3. DALACIN T [Concomitant]
     Indication: PRODUCT USED FOR UNKNOWN INDICATION
     Route: 061
     Dates: start: 19960101
  4. SALBUTAMOL CFC-FREE [Concomitant]
     Indication: PRODUCT USED FOR UNKNOWN INDICATION
     Dosage: 100 MICROGRAMS/PUFF AS DIRECTED
     Dates: start: 19960101
  5. RABEPRAZOLE SODIUM E/C [Concomitant]
     Indication: PRODUCT USED FOR UNKNOWN INDICATION
     Dosage: ONE DAILY IN THE MORNING
     Dates: start: 19960101
  6. TAMSULOSIN HYDROCHLORIDE M/R [Concomitant]
     Indication: PRODUCT USED FOR UNKNOWN INDICATION
     Dates: start: 19960101
  7. BENDROFLUMETHIAZIDE [Concomitant]
     Indication: PRODUCT USED FOR UNKNOWN INDICATION
     Dosage: ONCE A DAY, IN THE MORNING
     Dates: start: 19960101
  8. SALMETEROL XINAFORTE CFC-FREE [Concomitant]
     Indication: PRODUCT USED FOR UNKNOWN INDICATION
     Dosage: 25MICROGRAMS/ACTUATION-2PUFFS TWICE DAY
     Dates: start: 19960101
  9. CITALOPRAM HYDROBROMIDE [Concomitant]
     Indication: PRODUCT USED FOR UNKNOWN INDICATION
     Dates: start: 19960101
  10. AMITRIPTYLINE HYDROCHLORIDE [Concomitant]
     Indication: PRODUCT USED FOR UNKNOWN INDICATION
     Dosage: ONE AT NIGHT
     Dates: start: 19960101
  11. ADIZEM-SR M/R [Concomitant]
     Indication: PRODUCT USED FOR UNKNOWN INDICATION
     Dates: start: 19960101
  12. GAVISCON [Concomitant]
     Indication: PRODUCT USED FOR UNKNOWN INDICATION
     Route: 048
     Dates: start: 19960101
  13. GLYCERYL TRINITRATE CFC-FREE [Concomitant]
     Indication: PRODUCT USED FOR UNKNOWN INDICATION
     Dosage: PUMP SPRAY AS DIRECTED
     Dates: start: 19960101
  14. DOXYCICLINE [Concomitant]
     Indication: PRODUCT USED FOR UNKNOWN INDICATION
     Dates: start: 19960101
  15. PREDNISOLONE [Concomitant]
     Indication: PRODUCT USED FOR UNKNOWN INDICATION
     Dates: start: 19960101
  16. ACETAMINOPHEN AND CODEINE PHOSPHATE [Concomitant]
     Indication: PRODUCT USED FOR UNKNOWN INDICATION
     Dosage: 1-2 TABLETS  4 TIMES A DAY, AS REQUIRED
     Dates: start: 19960101
  17. INSTILLAGEL [Concomitant]
     Indication: PRODUCT USED FOR UNKNOWN INDICATION
     Dosage: SYRINGE AS DIRECTED
     Dates: start: 19960101
  18. CREON [Concomitant]
     Indication: PRODUCT USED FOR UNKNOWN INDICATION
     Dates: start: 19960101
  19. SIMVASTATIN [Concomitant]
     Indication: BLOOD CHOLESTEROL INCREASED
     Dates: start: 19960101
  20. CHOLESTYRAMINE [Concomitant]
     Indication: PRODUCT USED FOR UNKNOWN INDICATION
     Dosage: 4 GRAMS/SACHET, THREE TIMES DAILY
     Route: 048
     Dates: start: 19960101
  21. MEBEVERINE HYDROCHLORIDE [Concomitant]
     Indication: PRODUCT USED FOR UNKNOWN INDICATION
     Dosage: 3 TIMES A DAY PRE-MEALS
     Dates: start: 19960101
  22. FLUTICASONE PROPIONATE [Concomitant]
     Indication: PRODUCT USED FOR UNKNOWN INDICATION
     Dosage: 1 SPRAY
     Route: 045
     Dates: start: 19960101
  23. LOPERAMIDE HYDROCHLORIDE [Concomitant]
     Indication: PRODUCT USED FOR UNKNOWN INDICATION
     Dosage: ONCE EVERY 4 HOURS, AS REQUIRED
     Dates: start: 19960101
  24. PROCTOSEDYL [Concomitant]
     Indication: PRODUCT USED FOR UNKNOWN INDICATION
     Dates: start: 19960101

REACTIONS (8)
  - ABNORMAL BEHAVIOUR [None]
  - PANIC REACTION [None]
  - MEMORY IMPAIRMENT [None]
  - SCREAMING [None]
  - HALLUCINATION [None]
  - ANXIETY [None]
  - AGGRESSION [None]
  - CONFUSIONAL STATE [None]
